FAERS Safety Report 10095985 (Version 2)
Quarter: 2014Q2

REPORT INFORMATION
  Report Type: Spontaneous
  Country: US (occurrence: US)
  Receive Date: 20140422
  Receipt Date: 20140512
  Transmission Date: 20141212
  Serious: Yes (Other)
  Sender: FDA-Public Use
  Company Number: US-BAYER-2014-056563

PATIENT
  Age: 44 Year
  Sex: Female

DRUGS (2)
  1. YASMIN [Suspect]
  2. OCELLA [Suspect]

REACTIONS (1)
  - Cerebrovascular accident [Recovering/Resolving]
